FAERS Safety Report 22106108 (Version 2)
Quarter: 2023Q2

REPORT INFORMATION
  Report Type: Spontaneous
  Country: US (occurrence: US)
  Receive Date: 20230317
  Receipt Date: 20230505
  Transmission Date: 20230721
  Serious: Yes (Life-Threatening, Hospitalization, Other)
  Sender: FDA-Public Use
  Company Number: US-SA-SAC20230314001819

PATIENT
  Age: 67 Year
  Sex: Male

DRUGS (17)
  1. TAXOTERE [Suspect]
     Active Substance: DOCETAXEL
     Indication: Non-small cell lung cancer metastatic
     Dosage: 155 MG, Q3W
     Route: 042
     Dates: start: 20230217
  2. ACETAMINOPHEN\HYDROCODONE [Concomitant]
     Active Substance: ACETAMINOPHEN\HYDROCODONE
     Indication: Pain
     Dosage: UNK, PRN10 MG-325 MG ORALLY AS NEEDED
     Route: 048
     Dates: start: 2021
  3. SYNTHROID [Concomitant]
     Active Substance: LEVOTHYROXINE SODIUM
     Indication: Thyroiditis
     Dosage: UNK
     Route: 048
     Dates: start: 202207, end: 20230127
  4. MOTRIN [Concomitant]
     Active Substance: IBUPROFEN
     Indication: Pain
     Dosage: UNK
     Route: 048
     Dates: start: 2021
  5. LIDOCAINE\PRILOCAINE [Concomitant]
     Active Substance: LIDOCAINE\PRILOCAINE
     Indication: Pain
     Dosage: UNK
     Dates: start: 20220113
  6. EZETIMIBE [Concomitant]
     Active Substance: EZETIMIBE
     Indication: Hyperlipidaemia
     Dosage: UNK
     Dates: start: 20211021
  7. NITROGLYCERIN [Concomitant]
     Active Substance: NITROGLYCERIN
     Indication: Chest pain
     Dosage: 0.4 MG, PRN
     Route: 060
     Dates: start: 2000
  8. OMEPRAZOLE [Concomitant]
     Active Substance: OMEPRAZOLE
     Indication: Gastrooesophageal reflux disease
     Dosage: UNK
     Route: 048
     Dates: start: 20220805
  9. ATORVASTATIN [Concomitant]
     Active Substance: ATORVASTATIN
     Indication: Hyperlipidaemia
     Dosage: 80 MG, HS
     Route: 048
     Dates: start: 2021
  10. TAMSULOSIN [Concomitant]
     Active Substance: TAMSULOSIN
     Indication: Urinary retention
     Dosage: 0.4 MG, QD
     Route: 048
     Dates: start: 20211123
  11. METOPROLOL TARTRATE [Concomitant]
     Active Substance: METOPROLOL TARTRATE
     Indication: Hypertension
     Dosage: 25 MG, QD
     Route: 048
     Dates: start: 20211001
  12. SATIVA SOFT [Concomitant]
     Indication: Appetite disorder
     Dosage: 5 MG, PRN
     Dates: start: 2021
  13. ACETAMINOPHEN\HYDROCODONE [Concomitant]
     Active Substance: ACETAMINOPHEN\HYDROCODONE
     Indication: Pain
     Dosage: 10MG-325MG ORALLY AS NEEDED
     Route: 048
  14. NAPROXEN [Concomitant]
     Active Substance: NAPROXEN
     Indication: Pain
     Dosage: 800MG
     Route: 048
  15. OBINUTUZUMAB [Concomitant]
     Active Substance: OBINUTUZUMAB
     Route: 042
     Dates: start: 20230131
  16. CANNABIS SATIVA FLOWERING TOP [Concomitant]
     Active Substance: CANNABIS SATIVA FLOWERING TOP
     Dosage: 5 MG, AS NEEDED
     Route: 048
  17. NAPTUMOMAB ESTAFENATOX [Concomitant]
     Active Substance: NAPTUMOMAB ESTAFENATOX
     Dosage: ON DAYS 1-4 EVERY 21 DAYS
     Route: 042
     Dates: start: 20230213

REACTIONS (12)
  - Sepsis [Unknown]
  - Asthenia [Unknown]
  - Chills [Unknown]
  - Nausea [Unknown]
  - Pain [Unknown]
  - Tachypnoea [Unknown]
  - Feeding disorder [Unknown]
  - Fall [Unknown]
  - Hypotension [Unknown]
  - Tachycardia [Unknown]
  - Loss of consciousness [Unknown]
  - Head injury [Unknown]

NARRATIVE: CASE EVENT DATE: 20230101
